FAERS Safety Report 8112628-6 (Version None)
Quarter: 2012Q1

REPORT INFORMATION
  Report Type: 
  Country: None (occurrence: None)
  Receive Date: 20120203
  Receipt Date: 20120125
  Transmission Date: 20120608
  Serious: Yes (Hospitalization)
  Sender: FDA-Public Use
  Company Number: JP-NOVOPROD-332701

PATIENT
  Age: 39 Year
  Sex: Female
  Weight: 93 kg

DRUGS (8)
  1. LIPIDIL [Concomitant]
     Indication: DYSLIPIDAEMIA
     Dosage: 200 MG, QD
     Route: 048
     Dates: start: 20110507, end: 20110717
  2. VICTOZA [Suspect]
     Dosage: 0.9 MG, QD
     Route: 058
     Dates: end: 20110717
  3. LORAMET [Concomitant]
     Indication: INSOMNIA
     Dosage: 1.0
     Route: 048
  4. LANSOPRAZOLE [Concomitant]
     Indication: DYSLIPIDAEMIA
     Dosage: 15
     Route: 048
  5. VICTOZA [Suspect]
     Dosage: 0.6 MG, QD
     Route: 058
  6. ROHYPNOL [Concomitant]
     Indication: INSOMNIA
     Dosage: 2
     Route: 048
  7. VICTOZA [Suspect]
     Indication: TYPE 2 DIABETES MELLITUS
     Dosage: 0.3 MG, QD
     Route: 058
     Dates: start: 20110507
  8. BAXO [Concomitant]
     Indication: GASTRITIS
     Dosage: 20 MG, QD
     Route: 048

REACTIONS (1)
  - PANCREATITIS ACUTE [None]
